FAERS Safety Report 4405109-4 (Version None)
Quarter: 2004Q3

REPORT INFORMATION
  Report Type: 
  Country: None (occurrence: None)
  Receive Date: 20040716
  Receipt Date: 20040702
  Transmission Date: 20050211
  Serious: Yes (Hospitalization)
  Sender: FDA-Public Use
  Company Number: 175998

PATIENT
  Age: 46 Year
  Sex: Male

DRUGS (2)
  1. AVONEX [Suspect]
     Indication: MULTIPLE SCLEROSIS
     Dates: start: 20020101
  2. ANTIDEPRESSANT [Concomitant]

REACTIONS (6)
  - BLADDER DISORDER [None]
  - DEHYDRATION [None]
  - HORMONE LEVEL ABNORMAL [None]
  - RENAL FAILURE [None]
  - SEPSIS [None]
  - THIRST [None]
